FAERS Safety Report 14598030 (Version 1)
Quarter: 2018Q1

REPORT INFORMATION
  Report Type: Spontaneous
  Country: US (occurrence: US)
  Receive Date: 20180302
  Receipt Date: 20180302
  Transmission Date: 20180509
  Serious: No
  Sender: FDA-Public Use
  Company Number: None

PATIENT
  Age: 39 Year
  Sex: Female

DRUGS (8)
  1. SPRINTEC [Concomitant]
     Active Substance: ETHINYL ESTRADIOL\NORGESTIMATE
  2. HUMALOG [Concomitant]
     Active Substance: INSULIN LISPRO
  3. LOVASTATIN. [Concomitant]
     Active Substance: LOVASTATIN
  4. GLUCAGON. [Concomitant]
     Active Substance: GLUCAGON
  5. TYLENOL [Concomitant]
     Active Substance: ACETAMINOPHEN
  6. ELOCON [Concomitant]
     Active Substance: MOMETASONE FUROATE
  7. GLATOPA [Concomitant]
     Active Substance: GLATIRAMER ACETATE
  8. AMPYRA [Suspect]
     Active Substance: DALFAMPRIDINE
     Indication: MULTIPLE SCLEROSIS
     Route: 048
     Dates: start: 201404

REACTIONS (1)
  - Urinary tract infection [None]

NARRATIVE: CASE EVENT DATE: 20180222
